FAERS Safety Report 10957051 (Version 4)
Quarter: 2015Q3

REPORT INFORMATION
  Report Type: Report from Study
  Country: JP (occurrence: None)
  Receive Date: 20150324
  Receipt Date: 20150814
  Transmission Date: 20151125
  Serious: Yes (Hospitalization)
  Sender: FDA-Public Use
  Company Number: 2015-000511

PATIENT
  Age: 69 Year
  Sex: Female

DRUGS (4)
  1. RISEDRONATE (RISEDRONATE SODIUM) UNKNOWN, UNKUNK [Suspect]
     Active Substance: RISEDRONATE SODIUM
     Indication: OSTEOPOROSIS
     Route: 048
     Dates: start: 20140808, end: 20150803
  2. AMLODIN (AMLODIPINE BESILATE) [Concomitant]
  3. CALCIUM LACTATE (CALCIUM LACTATE) [Concomitant]
     Active Substance: CALCIUM LACTATE
  4. LIPITOR [Concomitant]
     Active Substance: ATORVASTATIN CALCIUM

REACTIONS (4)
  - Abdominal discomfort [None]
  - Gastritis [None]
  - Decreased appetite [None]
  - Large intestine polyp [None]

NARRATIVE: CASE EVENT DATE: 20150213
